FAERS Safety Report 14929722 (Version 3)
Quarter: 2018Q3

REPORT INFORMATION
  Report Type: Spontaneous
  Country: CZ (occurrence: CZ)
  Receive Date: 20180523
  Receipt Date: 20180717
  Transmission Date: 20181010
  Serious: Yes (Hospitalization)
  Sender: FDA-Public Use
  Company Number: CZ-BAUSCH-BL-2018-014536

PATIENT
  Age: 42 Year
  Sex: Male

DRUGS (10)
  1. PREDNISOLONE. [Suspect]
     Active Substance: PREDNISOLONE
     Indication: CHEMOTHERAPY
  2. RITUXIMAB. [Suspect]
     Active Substance: RITUXIMAB
     Indication: CHEMOTHERAPY
  3. DOXORUBICIN [Suspect]
     Active Substance: DOXORUBICIN
     Indication: NON-HODGKIN^S LYMPHOMA
     Route: 065
     Dates: start: 200707
  4. VINCRISTINE [Suspect]
     Active Substance: VINCRISTINE
     Indication: CHEMOTHERAPY
  5. RITUXIMAB. [Suspect]
     Active Substance: RITUXIMAB
     Indication: NON-HODGKIN^S LYMPHOMA
     Route: 065
     Dates: start: 200707
  6. CYCLOPHOSPHAMIDE. [Suspect]
     Active Substance: CYCLOPHOSPHAMIDE
     Indication: NON-HODGKIN^S LYMPHOMA
     Route: 065
     Dates: start: 200707
  7. DOXORUBICIN [Suspect]
     Active Substance: DOXORUBICIN
     Indication: CHEMOTHERAPY
  8. VINCRISTINE [Suspect]
     Active Substance: VINCRISTINE
     Indication: NON-HODGKIN^S LYMPHOMA
     Route: 065
     Dates: start: 200707
  9. CYCLOPHOSPHAMIDE. [Suspect]
     Active Substance: CYCLOPHOSPHAMIDE
     Indication: CHEMOTHERAPY
  10. PREDNISOLONE. [Suspect]
     Active Substance: PREDNISOLONE
     Indication: NON-HODGKIN^S LYMPHOMA
     Route: 065
     Dates: start: 200707

REACTIONS (3)
  - Acute hepatic failure [Recovered/Resolved]
  - Hepatic encephalopathy [Recovered/Resolved]
  - Hepatitis B [Recovered/Resolved]

NARRATIVE: CASE EVENT DATE: 200804
